FAERS Safety Report 13472471 (Version 2)
Quarter: 2017Q2

REPORT INFORMATION
  Report Type: Report from Study
  Country: US (occurrence: US)
  Receive Date: 20170424
  Receipt Date: 20170524
  Transmission Date: 20170830
  Serious: Yes (Death, Hospitalization)
  Sender: FDA-Public Use
  Company Number: US-PFIZER INC-2017154528

PATIENT
  Age: 66 Year
  Sex: Female

DRUGS (1)
  1. IBRANCE [Suspect]
     Active Substance: PALBOCICLIB
     Indication: BREAST CANCER
     Dosage: 125 MG, CYCLIC [ ONCE DAILY FOR 21 DAYS IN A ROW, FOLLOWED BY 7 DAYS OFF]
     Route: 048
     Dates: start: 20170325, end: 20170407

REACTIONS (5)
  - Dyspnoea [Recovering/Resolving]
  - White blood cell count decreased [Unknown]
  - Fatigue [Recovering/Resolving]
  - Death [Fatal]
  - Pulmonary oedema [Recovered/Resolved]

NARRATIVE: CASE EVENT DATE: 20170507
